FAERS Safety Report 6187036-8 (Version None)
Quarter: 2009Q2

REPORT INFORMATION
  Report Type: 
  Country: None (occurrence: None)
  Receive Date: 20090512
  Receipt Date: 20090506
  Transmission Date: 20091009
  Serious: Yes (Death, Other)
  Sender: FDA-Public Use
  Company Number: FI-ELI_LILLY_AND_COMPANY-FI200905001202

PATIENT
  Sex: Male

DRUGS (2)
  1. ALIMTA [Suspect]
     Indication: NEOPLASM MALIGNANT
     Dosage: UNK, UNKNOWN
     Route: 065
  2. CISPLATIN [Concomitant]
     Indication: NEOPLASM MALIGNANT

REACTIONS (9)
  - ASTHENIA [None]
  - DEATH [None]
  - DRUG TOXICITY [None]
  - DYSPNOEA [None]
  - LIP SWELLING [None]
  - LOSS OF CONSCIOUSNESS [None]
  - PRODUCTIVE COUGH [None]
  - SPEECH DISORDER [None]
  - SWELLING FACE [None]
